FAERS Safety Report 19843748 (Version 3)
Quarter: 2021Q4

REPORT INFORMATION
  Report Type: Spontaneous
  Country: US (occurrence: None)
  Receive Date: 20210917
  Receipt Date: 20211117
  Transmission Date: 20220303
  Serious: Yes (Hospitalization, Other)
  Sender: FDA-Public Use
  Company Number: US-ROCHE-2897487

PATIENT
  Age: 68 Year
  Sex: Male

DRUGS (3)
  1. XELODA [Suspect]
     Active Substance: CAPECITABINE
     Indication: Product used for unknown indication
     Route: 048
  2. TUKYSA [Suspect]
     Active Substance: TUCATINIB
     Indication: Oesophageal carcinoma
     Route: 065
  3. TUKYSA [Suspect]
     Active Substance: TUCATINIB
     Indication: Metastases to central nervous system

REACTIONS (11)
  - Off label use [Unknown]
  - Fatigue [Unknown]
  - Stomatitis [Unknown]
  - Pyrexia [Unknown]
  - Hypotension [Unknown]
  - Pneumonia [Unknown]
  - White blood cell count decreased [Unknown]
  - Red blood cell count decreased [Unknown]
  - Brain oedema [Unknown]
  - Diarrhoea [Unknown]
  - Amnesia [Unknown]

NARRATIVE: CASE EVENT DATE: 20210702
